FAERS Safety Report 25618138 (Version 1)
Quarter: 2025Q3

REPORT INFORMATION
  Report Type: Spontaneous
  Country: US (occurrence: US)
  Receive Date: 20250729
  Receipt Date: 20250729
  Transmission Date: 20251020
  Serious: Yes (Other)
  Sender: GLAND PHARMA LTD
  Company Number: US-GLANDPHARMA-US-2025GLNLIT01635

PATIENT
  Age: 49 Year
  Sex: Male

DRUGS (3)
  1. MITOMYCIN [Suspect]
     Active Substance: MITOMYCIN
     Indication: Colon cancer metastatic
     Route: 065
     Dates: start: 201901, end: 202304
  2. MITOMYCIN [Suspect]
     Active Substance: MITOMYCIN
     Route: 065
     Dates: start: 201901, end: 202304
  3. FLOXURIDINE [Concomitant]
     Active Substance: FLOXURIDINE
     Route: 025

REACTIONS (4)
  - Hepatic artery occlusion [Not Recovered/Not Resolved]
  - Hepatic artery stenosis [Not Recovered/Not Resolved]
  - Angiopathy [Not Recovered/Not Resolved]
  - Product use in unapproved indication [Unknown]
